FAERS Safety Report 16999641 (Version 1)
Quarter: 2019Q4

REPORT INFORMATION
  Report Type: Spontaneous
  Country: CN (occurrence: CN)
  Receive Date: 20191106
  Receipt Date: 20191106
  Transmission Date: 20200122
  Serious: Yes (Other)
  Sender: FDA-Public Use
  Company Number: CN-PFIZER INC-2019472327

PATIENT
  Age: 61 Year
  Sex: Male
  Weight: 93 kg

DRUGS (4)
  1. TRAMADOL HYDROCHLORIDE. [Suspect]
     Active Substance: TRAMADOL HYDROCHLORIDE
     Indication: SKIN INFECTION
  2. CELECOXIB. [Suspect]
     Active Substance: CELECOXIB
     Indication: ANALGESIC THERAPY
     Dosage: 0.2 G, 1X/DAY
     Route: 048
     Dates: start: 20191020, end: 20191025
  3. CELECOXIB. [Suspect]
     Active Substance: CELECOXIB
     Indication: SKIN INFECTION
  4. TRAMADOL HYDROCHLORIDE. [Suspect]
     Active Substance: TRAMADOL HYDROCHLORIDE
     Indication: ANALGESIC THERAPY
     Dosage: 0.1 G, 2X/DAY
     Route: 048
     Dates: start: 20191022, end: 20191022

REACTIONS (6)
  - Gastritis erosive [Recovering/Resolving]
  - Erosive duodenitis [Recovering/Resolving]
  - Nausea [Recovering/Resolving]
  - Dizziness [Recovering/Resolving]
  - Gastric ulcer [Recovering/Resolving]
  - Vomiting [Recovering/Resolving]

NARRATIVE: CASE EVENT DATE: 20191022
